FAERS Safety Report 5149422-4 (Version None)
Quarter: 2006Q4

REPORT INFORMATION
  Report Type: 
  Country: None (occurrence: None)
  Receive Date: 20061113
  Receipt Date: 20060106
  Transmission Date: 20070319
  Serious: No
  Sender: FDA-Public Use
  Company Number: 431391

PATIENT
  Sex: Male

DRUGS (3)
  1. COREG [Suspect]
     Indication: DRUG USE FOR UNKNOWN INDICATION
     Dosage: 3.125MG UNKNOWN
     Route: 048
  2. LODINE [Suspect]
  3. ALTACE [Concomitant]

REACTIONS (2)
  - LIP SWELLING [None]
  - RASH MACULO-PAPULAR [None]
